FAERS Safety Report 6389952-0 (Version None)
Quarter: 2009Q4

REPORT INFORMATION
  Report Type: 
  Country: None (occurrence: None)
  Receive Date: 20091006
  Receipt Date: 20090605
  Transmission Date: 20100525
  Serious: No
  Sender: FDA-Public Use
  Company Number: US-BRISTOL-MYERS SQUIBB COMPANY-14654958

PATIENT
  Age: 68 Year
  Sex: Male

DRUGS (1)
  1. AVAPRO [Suspect]
     Indication: HYPERTENSION
     Dosage: 1 DF- 150 (NO UNITS SPECIFIED)
     Dates: start: 20080201

REACTIONS (2)
  - DYSPNOEA [None]
  - RHINORRHOEA [None]
